FAERS Safety Report 10050136 (Version 1)
Quarter: 2014Q2

REPORT INFORMATION
  Report Type: Spontaneous
  Country: IN (occurrence: IN)
  Receive Date: 20140401
  Receipt Date: 20140401
  Transmission Date: 20141212
  Serious: Yes (Hospitalization)
  Sender: FDA-Public Use
  Company Number: IN-009507513-1403IND014650

PATIENT
  Age: 53 Year
  Sex: Male
  Weight: 52 kg

DRUGS (1)
  1. JANUVIA [Suspect]
     Indication: DIABETES MELLITUS
     Dosage: STRENGTH 100(UNITS NOT REPORTED), QD,
     Route: 048
     Dates: end: 201403

REACTIONS (2)
  - Dizziness [Unknown]
  - Vomiting [Unknown]
